FAERS Safety Report 24968327 (Version 1)
Quarter: 2025Q1

REPORT INFORMATION
  Report Type: Spontaneous
  Country: US (occurrence: US)
  Receive Date: 20250214
  Receipt Date: 20250214
  Transmission Date: 20250409
  Serious: No
  Sender: APOTEX
  Company Number: US-APOTEX-2025AP002012

PATIENT
  Age: 57 Year
  Sex: Female

DRUGS (4)
  1. OLANZAPINE [Suspect]
     Active Substance: OLANZAPINE
     Indication: Insomnia
     Route: 065
  2. OLANZAPINE [Suspect]
     Active Substance: OLANZAPINE
     Indication: Appetite disorder
  3. OLANZAPINE [Suspect]
     Active Substance: OLANZAPINE
     Indication: Impulsive behaviour
  4. OLANZAPINE [Suspect]
     Active Substance: OLANZAPINE
     Indication: Depression

REACTIONS (2)
  - Insomnia [Unknown]
  - Palpitations [Unknown]
